FAERS Safety Report 14592876 (Version 14)
Quarter: 2019Q2

REPORT INFORMATION
  Report Type: Spontaneous
  Country: CA (occurrence: CA)
  Receive Date: 20180302
  Receipt Date: 20190522
  Transmission Date: 20190711
  Serious: Yes (Hospitalization, Disabling)
  Sender: FDA-Public Use
  Company Number: CA-CELLTRION INC.-2017CA012209

PATIENT

DRUGS (18)
  1. INFLECTRA [Suspect]
     Active Substance: INFLIXIMAB-DYYB
     Dosage: 500 MG EVERY 4WEEKS
     Route: 042
     Dates: start: 20171020, end: 20180202
  2. VITAMIN D [Concomitant]
     Active Substance: VITAMIN D NOS
     Dosage: 200U DAILY
  3. INFLECTRA [Suspect]
     Active Substance: INFLIXIMAB-DYYB
     Dosage: 500 MG EVERY 5 WEEKS
     Route: 042
     Dates: start: 20181214
  4. INFLECTRA [Suspect]
     Active Substance: INFLIXIMAB-DYYB
     Dosage: 500 MG EVERY 5 WEEKS
     Route: 042
     Dates: start: 20190225, end: 2019
  5. INFLECTRA [Suspect]
     Active Substance: INFLIXIMAB-DYYB
     Dosage: 500 MG, VERY 5 WEEKS
     Route: 042
     Dates: start: 20190503
  6. MULTIVITAMINS   [VITAMINS NOS] [Concomitant]
     Active Substance: VITAMINS
     Dosage: 1 TAB DAILY
  7. INFLECTRA [Suspect]
     Active Substance: INFLIXIMAB-DYYB
     Dosage: 500 MG, AT 0,2,6 WEEKS, THEN EVERY 8 WEEKS)
     Route: 042
     Dates: start: 20180202, end: 2018
  8. INFLECTRA [Suspect]
     Active Substance: INFLIXIMAB-DYYB
     Dosage: 500 MG EVERY 5 WEEKS
     Route: 042
     Dates: start: 20180727, end: 2018
  9. INFLECTRA [Suspect]
     Active Substance: INFLIXIMAB-DYYB
     Dosage: 500 MG EVERY 5 WEEKS
     Route: 042
     Dates: start: 20180831, end: 2018
  10. INFLECTRA [Suspect]
     Active Substance: INFLIXIMAB-DYYB
     Dosage: 500 MG EVERY 5 WEEKS
     Route: 042
     Dates: start: 20180911, end: 2018
  11. INFLECTRA [Suspect]
     Active Substance: INFLIXIMAB-DYYB
     Dosage: 500 MG EVERY 5 WEEKS
     Route: 042
     Dates: start: 20190118, end: 2019
  12. INFLECTRA [Suspect]
     Active Substance: INFLIXIMAB-DYYB
     Dosage: 500 MG, EVERY 5 WEEKS
     Route: 042
     Dates: start: 20190329
  13. INFLECTRA [Suspect]
     Active Substance: INFLIXIMAB-DYYB
     Indication: COLITIS ULCERATIVE
     Dosage: 500 MG, AT 0,2,6 WEEKS, THEN EVERY 8 WEEKS
     Route: 042
     Dates: start: 20170614, end: 20170908
  14. INFLECTRA [Suspect]
     Active Substance: INFLIXIMAB-DYYB
     Dosage: 500 MG EVERY 5 WEEKS
     Route: 042
     Dates: start: 20180309, end: 2018
  15. INFLECTRA [Suspect]
     Active Substance: INFLIXIMAB-DYYB
     Dosage: 500 MG, AT 0,2,6 WEEKS, THEN EVERY 8 WEEKS)
     Route: 042
     Dates: start: 20170803, end: 20170908
  16. INFLECTRA [Suspect]
     Active Substance: INFLIXIMAB-DYYB
     Dosage: 500 MG EVERY 5 WEEKS
     Route: 042
     Dates: start: 20180622, end: 2018
  17. METHYLPREDNISOLONE. [Concomitant]
     Active Substance: METHYLPREDNISOLONE
     Dosage: 40 MG, CYCLIC (EVERY 8 WEEKS)
     Route: 042
  18. INFLECTRA [Suspect]
     Active Substance: INFLIXIMAB-DYYB
     Dosage: 500 MG EVERY 5 WEEKS
     Route: 042
     Dates: start: 20181005, end: 2018

REACTIONS (11)
  - Off label use [Unknown]
  - Condition aggravated [Unknown]
  - Blood pressure increased [Unknown]
  - Anxiety [Unknown]
  - Off label use [Unknown]
  - Drug ineffective [Unknown]
  - Blood pressure fluctuation [Unknown]
  - Drug level increased [Unknown]
  - Off label use [Unknown]
  - Blood pressure fluctuation [Unknown]
  - Incorrect dose administered [Unknown]

NARRATIVE: CASE EVENT DATE: 20170826
